FAERS Safety Report 13928661 (Version 4)
Quarter: 2018Q2

REPORT INFORMATION
  Report Type: Spontaneous
  Country: CA (occurrence: CA)
  Receive Date: 20170901
  Receipt Date: 20180411
  Transmission Date: 20180711
  Serious: Yes (Hospitalization)
  Sender: FDA-Public Use
  Company Number: CA-PFIZER INC-2017373227

PATIENT
  Age: 83 Year
  Sex: Female
  Weight: 45 kg

DRUGS (7)
  1. REVATIO [Suspect]
     Active Substance: SILDENAFIL CITRATE
     Indication: PULMONARY HYPERTENSION
     Dosage: 20 MG, UNK
     Route: 048
     Dates: start: 20170505
  2. METOPROLOL. [Concomitant]
     Active Substance: METOPROLOL
     Dosage: 125 MG, UNK
  3. DIGOXIN. [Concomitant]
     Active Substance: DIGOXIN
     Dosage: 125 MG, UNK
  4. TRACLEER [Concomitant]
     Active Substance: BOSENTAN
  5. FUROSEMIDE. [Concomitant]
     Active Substance: FUROSEMIDE
     Dosage: 40 MG, UNK
  6. PRADAXA [Concomitant]
     Active Substance: DABIGATRAN ETEXILATE MESYLATE
     Dosage: 150 MG, UNK
  7. TAVIDAN [Concomitant]

REACTIONS (3)
  - Pneumonia [Not Recovered/Not Resolved]
  - Dyspnoea [Not Recovered/Not Resolved]
  - Oxygen saturation decreased [Unknown]

NARRATIVE: CASE EVENT DATE: 20170824
